FAERS Safety Report 9913516 (Version 1)
Quarter: 2014Q1

REPORT INFORMATION
  Report Type: Spontaneous
  Country: US (occurrence: None)
  Receive Date: 20140218
  Receipt Date: 20140218
  Transmission Date: 20141002
  Serious: Yes (Life-Threatening, Hospitalization)
  Sender: FDA-Public Use
  Company Number: None

PATIENT
  Age: 94 Year
  Sex: Male
  Weight: 65 kg

DRUGS (2)
  1. SULFAMETHOXAZOLE/TRIMETHOPRIM [Suspect]
     Route: 048
     Dates: start: 20130206, end: 20130216
  2. LISINOPRIL [Suspect]
     Route: 048
     Dates: start: 20010515, end: 20130319

REACTIONS (2)
  - Renal failure acute [None]
  - Hyperkalaemia [None]
